FAERS Safety Report 22061539 (Version 1)
Quarter: 2023Q1

REPORT INFORMATION
  Report Type: Spontaneous
  Country: CA (occurrence: CA)
  Receive Date: 20230304
  Receipt Date: 20230304
  Transmission Date: 20230418
  Serious: Yes (Other)
  Sender: FDA-Public Use
  Company Number: CA-CELLTRION INC.-2022CA013613

PATIENT

DRUGS (8)
  1. INFLECTRA [Suspect]
     Active Substance: INFLIXIMAB-DYYB
     Indication: Ankylosing spondylitis
     Dosage: 1000 MG, 0, 2, 6 THEN Q 8 WEEKS.
     Route: 042
     Dates: start: 20221102
  2. INFLECTRA [Suspect]
     Active Substance: INFLIXIMAB-DYYB
     Dosage: 1000 MG, 0, 2, 6 THEN Q 8 WEEKS.
     Route: 042
     Dates: start: 20221118
  3. INFLECTRA [Suspect]
     Active Substance: INFLIXIMAB-DYYB
     Dosage: 1000 MG, 0, 2, 6 THEN Q 8 WEEKS.
     Route: 042
     Dates: start: 20221216
  4. INFLECTRA [Suspect]
     Active Substance: INFLIXIMAB-DYYB
     Dosage: 1000 MG EVERY 8 WEEKS
     Route: 042
     Dates: start: 20230222
  5. CELEBREX [Concomitant]
     Active Substance: CELECOXIB
     Dosage: 500 MG
     Route: 065
     Dates: start: 2020
  6. GABAPENTIN [Concomitant]
     Active Substance: GABAPENTIN
     Dosage: UNK
  7. GABAPENTIN [Concomitant]
     Active Substance: GABAPENTIN
     Dosage: 600 MG
     Dates: start: 2020
  8. MORPHINE [Concomitant]
     Active Substance: MORPHINE
     Dosage: 1 DF, UNKNOWN DOSE

REACTIONS (8)
  - Hypertensive crisis [Unknown]
  - Headache [Unknown]
  - Chest pain [Unknown]
  - Pain [Unknown]
  - Pain [Unknown]
  - Fatigue [Recovered/Resolved]
  - Off label use [Unknown]
  - Inappropriate schedule of product administration [Unknown]

NARRATIVE: CASE EVENT DATE: 20220101
